FAERS Safety Report 20973054 (Version 1)
Quarter: 2022Q2

REPORT INFORMATION
  Report Type: Spontaneous
  Country: US (occurrence: US)
  Receive Date: 20220617
  Receipt Date: 20220617
  Transmission Date: 20220720
  Serious: Yes (Hospitalization, Other)
  Sender: FDA-Public Use
  Company Number: US-SPECGX-T202201387

PATIENT
  Age: 30 Year
  Sex: Male

DRUGS (4)
  1. FENTANYL CITRATE [Suspect]
     Active Substance: FENTANYL CITRATE
     Indication: Product used for unknown indication
     Dosage: UNK
     Route: 065
  2. BUPRENORPHINE [Suspect]
     Active Substance: BUPRENORPHINE
     Indication: Product used for unknown indication
     Dosage: UNK
     Route: 065
  3. LOPERAMIDE [Suspect]
     Active Substance: LOPERAMIDE
     Indication: Product used for unknown indication
     Dosage: 20 MILLIGRAM, QD
     Route: 065
  4. LOPERAMIDE [Suspect]
     Active Substance: LOPERAMIDE
     Dosage: 40 MILLIGRAM, ON THE DAY OF ADMISSION
     Route: 065

REACTIONS (14)
  - Ventricular arrhythmia [Unknown]
  - Ventricular tachycardia [Unknown]
  - Bundle branch block left [Unknown]
  - Blood urea increased [Unknown]
  - Blood creatinine increased [Unknown]
  - Electrocardiogram QT prolonged [Recovering/Resolving]
  - Torsade de pointes [Unknown]
  - Electrocardiogram T wave alternans [Unknown]
  - Hypokalaemia [Unknown]
  - Syncope [Unknown]
  - Overdose [Unknown]
  - Substance use [Unknown]
  - Hyperhidrosis [Unknown]
  - Dizziness [Unknown]
